FAERS Safety Report 11048173 (Version 1)
Quarter: 2015Q2

REPORT INFORMATION
  Report Type: Report from Study
  Country: US (occurrence: US)
  Receive Date: 20150420
  Receipt Date: 20150420
  Transmission Date: 20150821
  Serious: Yes (Hospitalization)
  Sender: FDA-Public Use
  Company Number: US-ACTELION-A-NJ2015-116323

PATIENT
  Age: 40 Year
  Sex: Female

DRUGS (2)
  1. TRACLEER [Suspect]
     Active Substance: BOSENTAN\BOSENTAN MONOHYDRATE
     Indication: PULMONARY ARTERIAL HYPERTENSION
     Dosage: UNK
     Route: 048
  2. SILDENAFIL. [Concomitant]
     Active Substance: SILDENAFIL

REACTIONS (13)
  - Coma [Unknown]
  - Haemoglobin decreased [Unknown]
  - Cardiac arrest [Unknown]
  - Ventricular drainage [Unknown]
  - Transfusion [Unknown]
  - Brain oedema [Unknown]
  - Viral infection [Unknown]
  - Oesophageal rupture [Unknown]
  - Endotracheal intubation [Unknown]
  - Oesophageal operation [Unknown]
  - CSF shunt operation [Unknown]
  - Oesophageal haemorrhage [Unknown]
  - Post procedural complication [Unknown]

NARRATIVE: CASE EVENT DATE: 20150222
